FAERS Safety Report 9620881 (Version 1)
Quarter: 2013Q4

REPORT INFORMATION
  Report Type: Spontaneous
  Country: UA (occurrence: UA)
  Receive Date: 20131015
  Receipt Date: 20131015
  Transmission Date: 20140711
  Serious: Yes (Other)
  Sender: FDA-Public Use
  Company Number: UA-JNJFOC-20131005068

PATIENT
  Sex: Female

DRUGS (4)
  1. DOXORUBICIN HYDROCHLORIDE [Suspect]
     Indication: BREAST CANCER
     Route: 042
  2. DOCETAXEL [Suspect]
     Indication: BREAST CANCER
     Route: 042
  3. LIPEGFILGRASTIM [Suspect]
     Indication: NEUTROPENIA
     Route: 058
  4. PEGFILGRASTIM [Suspect]
     Indication: NEUTROPENIA
     Route: 058

REACTIONS (13)
  - Febrile neutropenia [Unknown]
  - Adverse event [Unknown]
  - Neutropenia [Unknown]
  - Arthralgia [Unknown]
  - Myalgia [Unknown]
  - Bone pain [Unknown]
  - Alopecia [Unknown]
  - Nausea [Unknown]
  - Vomiting [Unknown]
  - Asthenia [Unknown]
  - Erythema [Unknown]
  - Leukopenia [Unknown]
  - Diarrhoea [Unknown]
